FAERS Safety Report 5052092-7 (Version None)
Quarter: 2006Q3

REPORT INFORMATION
  Report Type: 
  Country: None (occurrence: None)
  Receive Date: 20060711
  Receipt Date: 20060320
  Transmission Date: 20061208
  Serious: Yes (Other)
  Sender: FDA-Public Use
  Company Number: 2006BH006374

PATIENT

DRUGS (1)
  1. MIDAZOLAM HYDROCHLORIDE [Suspect]
     Indication: CONVULSION NEONATAL
     Dosage: 4.0 UG/KG;/MIN; UNKNOWN

REACTIONS (2)
  - HYPOTENSION [None]
  - URINARY RETENTION [None]
